FAERS Safety Report 7298840-7 (Version None)
Quarter: 2011Q1

REPORT INFORMATION
  Report Type: 
  Country: None (occurrence: None)
  Receive Date: 20110217
  Receipt Date: 20110126
  Transmission Date: 20110831
  Serious: Yes (Hospitalization)
  Sender: FDA-Public Use
  Company Number: US-ROCHE-759467

PATIENT
  Sex: Female

DRUGS (3)
  1. COREG CR [Suspect]
     Route: 048
  2. LISINOPRIL [Suspect]
     Route: 065
  3. KLONOPIN [Suspect]
     Route: 065

REACTIONS (1)
  - VENTRICULAR TACHYCARDIA [None]
